FAERS Safety Report 12650772 (Version 1)
Quarter: 2016Q3

REPORT INFORMATION
  Report Type: Spontaneous
  Country: US (occurrence: None)
  Receive Date: 20160812
  Receipt Date: 20160812
  Transmission Date: 20161109
  Serious: No
  Sender: FDA-Public Use
  Company Number: None

PATIENT
  Age: 65 Year
  Sex: Female
  Weight: 122.47 kg

DRUGS (3)
  1. LIDOCAINE 5% PATCH WATSON/ACTAVIS [Suspect]
     Active Substance: LIDOCAINE
     Indication: INTERVERTEBRAL DISC PROTRUSION
     Dosage: USED 10 PATCHES/ APPROX 5 DAYS  ?5% 2 PATCHES 12 HRS. ON AND 12 HRS. OFF TRANSDERMAL
     Route: 062
  2. LIDOCAINE 5% PATCH WATSON/ACTAVIS [Suspect]
     Active Substance: LIDOCAINE
     Indication: SPONDYLOLYSIS
     Dosage: USED 10 PATCHES/ APPROX 5 DAYS  ?5% 2 PATCHES 12 HRS. ON AND 12 HRS. OFF TRANSDERMAL
     Route: 062
  3. LIDOCAINE 5% PATCH WATSON/ACTAVIS [Suspect]
     Active Substance: LIDOCAINE
     Indication: OSTEOARTHRITIS
     Dosage: USED 10 PATCHES/ APPROX 5 DAYS  ?5% 2 PATCHES 12 HRS. ON AND 12 HRS. OFF TRANSDERMAL
     Route: 062

REACTIONS (2)
  - Drug effect decreased [None]
  - Product adhesion issue [None]

NARRATIVE: CASE EVENT DATE: 20160809
